FAERS Safety Report 8173820 (Version 3)
Quarter: 2012Q4

REPORT INFORMATION
  Report Type: 
  Country: US (occurrence: US)
  Receive Date: 20111010
  Receipt Date: 20121112
  Transmission Date: 20130627
  Serious: Yes (Death, Hospitalization, Other)
  Sender: FDA-Public Use
  Company Number: US-ASTELLAS-2011US006162

PATIENT
  Age: 57 None
  Sex: Male
  Weight: 84 kg

DRUGS (10)
  1. PROGRAF [Suspect]
     Indication: LIVER TRANSPLANT
     Dosage: 1 mg, bid
     Route: 048
     Dates: start: 2005
  2. PROGRAF [Suspect]
     Dosage: 2.5 mg, bid
     Route: 048
     Dates: start: 20050101, end: 20120926
  3. BABY ASPIRIN [Concomitant]
     Indication: CARDIAC DISORDER
     Dosage: 162 mg, UID/QD
     Route: 048
     Dates: start: 20090505
  4. CARVEDILOL [Concomitant]
     Indication: CARDIAC DISORDER
     Dosage: 6.25 mg, bid
     Route: 049
     Dates: start: 20090505
  5. CITALOPRAM [Concomitant]
     Indication: TREMOR
     Dosage: 40 mg, UID/QD
     Route: 048
     Dates: start: 2009
  6. CALCIUM D [Concomitant]
     Indication: BONE DISORDER
     Dosage: 500 mg, UID/QD
     Route: 048
     Dates: start: 2005
  7. FUROSEMIDE [Concomitant]
     Indication: DIURETIC THERAPY
     Dosage: 40 mg, UID/QD
     Route: 048
     Dates: start: 20100715
  8. GLIPIZIDE [Concomitant]
     Indication: DIABETES MELLITUS
     Dosage: 5 mg, UID/QD
     Route: 048
     Dates: start: 2005
  9. LISINOPRIL [Concomitant]
     Indication: CARDIOVASCULAR EVENT PROPHYLAXIS
     Dosage: 2.5 mg, qod
     Route: 048
     Dates: start: 2010
  10. CELLCEPT                           /01275102/ [Concomitant]
     Indication: LIVER TRANSPLANT
     Dosage: 1000 mg, bid
     Route: 048
     Dates: start: 20050101, end: 20120926

REACTIONS (6)
  - Hypoxic-ischaemic encephalopathy [Fatal]
  - Renal disorder [Unknown]
  - Hip arthroplasty [Unknown]
  - Cardiac arrest [Fatal]
  - Fall [Unknown]
  - Myocardial infarction [Unknown]
